FAERS Safety Report 11839636 (Version 1)
Quarter: 2015Q4

REPORT INFORMATION
  Report Type: Report from Study
  Country: BR (occurrence: BR)
  Receive Date: 20151216
  Receipt Date: 20151216
  Transmission Date: 20160305
  Serious: Yes (Hospitalization)
  Sender: FDA-Public Use
  Company Number: BR-ROCHE-1676831

PATIENT
  Sex: Female
  Weight: 51 kg

DRUGS (2)
  1. PULMOZYME [Suspect]
     Active Substance: DORNASE ALFA
     Indication: CYSTIC FIBROSIS
     Route: 065
     Dates: start: 1984
  2. HUMULIN NOS [Concomitant]
     Active Substance: INSULIN HUMAN
     Indication: DIABETES MELLITUS
     Route: 065

REACTIONS (2)
  - Cystic fibrosis [Unknown]
  - Drug ineffective [Unknown]

NARRATIVE: CASE EVENT DATE: 2015
